FAERS Safety Report 6638270-1 (Version None)
Quarter: 2010Q1

REPORT INFORMATION
  Report Type: 
  Country: None (occurrence: None)
  Receive Date: 20100317
  Receipt Date: 20100303
  Transmission Date: 20100710
  Serious: Yes (Other)
  Sender: FDA-Public Use
  Company Number: GB-SANOFI-AVENTIS-2010SA014893

PATIENT
  Age: 54 Year
  Sex: Male

DRUGS (18)
  1. FLUDARABINE PHOSPHATE [Suspect]
     Route: 048
  2. FLUDARABINE PHOSPHATE [Suspect]
     Route: 048
  3. FLUDARABINE PHOSPHATE [Suspect]
     Route: 048
  4. CAMPATH [Suspect]
     Route: 065
  5. CAMPATH [Suspect]
     Indication: BONE MARROW CONDITIONING REGIMEN
     Route: 065
  6. CAMPATH [Suspect]
     Route: 065
  7. CHLORAMBUCIL [Suspect]
     Route: 065
  8. CHLORAMBUCIL [Suspect]
     Route: 065
  9. CYCLOPHOSPHAMIDE [Suspect]
     Route: 065
  10. CYCLOPHOSPHAMIDE [Suspect]
     Route: 065
  11. DOXORUBICIN [Suspect]
     Route: 065
  12. DOXORUBICIN [Suspect]
     Route: 065
  13. MELPHALAN HYDROCHLORIDE [Suspect]
     Route: 065
  14. MELPHALAN HYDROCHLORIDE [Suspect]
     Route: 065
  15. GRANULOCYTE COLONY STIMULATING FACTOR [Concomitant]
     Indication: NEUTROPENIA
  16. ANTIBIOTICS [Concomitant]
  17. BLOOD TRANSFUSION, AUXILIARY PRODUCTS [Concomitant]
  18. PLATELETS [Concomitant]

REACTIONS (3)
  - ACUTE GRAFT VERSUS HOST DISEASE IN SKIN [None]
  - AUTOIMMUNE THROMBOCYTOPENIA [None]
  - LYMPHOCYTOSIS [None]
